FAERS Safety Report 9293069 (Version 1)
Quarter: 2013Q1

REPORT INFORMATION
  Report Type: Spontaneous
  Country: US (occurrence: None)
  Receive Date: 20121214
  Receipt Date: 20121214
  Transmission Date: 20140127
  Serious: Yes (Hospitalization)
  Sender: FDA-Public Use
  Company Number: 1203USA01223

PATIENT
  Sex: Female
  Weight: 118.1 kg

DRUGS (6)
  1. JANUVIA [Suspect]
     Indication: TYPE 2 DIABETES MELLITUS
     Route: 048
     Dates: start: 20110803
  2. MK-9378 (METFORMIN) [Concomitant]
  3. GLIPIZIDE (GLIPIZIDE) [Concomitant]
  4. METOPROLOL (METOPROLOL) [Concomitant]
  5. PRINIVIL (LISINOPRIL) [Concomitant]
  6. CRESTOR (ROSUVASTATIN CALCIUM) [Concomitant]

REACTIONS (1)
  - Pancreatitis [None]
